FAERS Safety Report 9518195 (Version 1)
Quarter: 2013Q3

REPORT INFORMATION
  Report Type: Spontaneous
  Country: FR (occurrence: FR)
  Receive Date: 20130912
  Receipt Date: 20130912
  Transmission Date: 20140515
  Serious: No
  Sender: FDA-Public Use
  Company Number: FR-JNJFOC-20130903872

PATIENT
  Age: 70 Year
  Sex: Male

DRUGS (1)
  1. DUROGESIC [Suspect]
     Indication: PAIN
     Route: 062
     Dates: start: 20130903, end: 20130906

REACTIONS (4)
  - Migraine [Unknown]
  - Inappropriate schedule of drug administration [Unknown]
  - Fatigue [Unknown]
  - Drug prescribing error [Unknown]
